FAERS Safety Report 9253725 (Version 4)
Quarter: 2014Q1

REPORT INFORMATION
  Report Type: Spontaneous
  Country: US (occurrence: US)
  Receive Date: 20130425
  Receipt Date: 20140311
  Transmission Date: 20141002
  Serious: Yes (Hospitalization)
  Sender: FDA-Public Use
  Company Number: US-ASTRAZENECA-2013SE27601

PATIENT
  Age: 74 Year
  Sex: Female
  Weight: 63.5 kg

DRUGS (19)
  1. ZOLOFT [Concomitant]
     Dates: start: 20060228
  2. LEVAQUIN [Concomitant]
     Dates: start: 20060904
  3. SERTRALINE HCL [Concomitant]
     Dates: start: 20060923
  4. LIPITOR [Concomitant]
  5. LEXAPRO [Concomitant]
  6. ATENOLOL [Concomitant]
  7. ACETAMINOPHEN [Concomitant]
  8. NEXIUM [Suspect]
     Indication: GASTROOESOPHAGEAL REFLUX DISEASE
     Route: 048
  9. NEXIUM [Suspect]
     Indication: GASTROOESOPHAGEAL REFLUX DISEASE
     Dosage: ONE OR TWO TIMES A DAY
     Route: 048
  10. NEXIUM [Suspect]
     Indication: GASTROOESOPHAGEAL REFLUX DISEASE
     Route: 048
     Dates: start: 2002, end: 2013
  11. NEXIUM [Suspect]
     Indication: GASTROOESOPHAGEAL REFLUX DISEASE
     Route: 048
     Dates: start: 20060521
  12. PEPTO-BISMOL [Concomitant]
     Indication: GASTROOESOPHAGEAL REFLUX DISEASE
  13. SIMVASTATIN [Concomitant]
     Indication: GASTROOESOPHAGEAL REFLUX DISEASE
  14. AMLODIPINE [Concomitant]
     Indication: GASTROOESOPHAGEAL REFLUX DISEASE
  15. CHLORTHALIDONE [Concomitant]
     Indication: GASTROOESOPHAGEAL REFLUX DISEASE
  16. CALCIUM [Concomitant]
  17. VITAMIN D [Concomitant]
  18. HYDROCHLOROTHIAZIDE [Concomitant]
     Dates: start: 20050717
  19. LOVASTATIN [Concomitant]
     Dates: start: 20050918

REACTIONS (7)
  - Iron deficiency [Unknown]
  - Osteoporosis [Unknown]
  - Bone disorder [Unknown]
  - Ankle fracture [Unknown]
  - Cataract [Unknown]
  - Fall [Unknown]
  - Osteopenia [Unknown]
